FAERS Safety Report 19261090 (Version 1)
Quarter: 2021Q2

REPORT INFORMATION
  Report Type: Spontaneous
  Country: US (occurrence: US)
  Receive Date: 20210515
  Receipt Date: 20210515
  Transmission Date: 20210717
  Serious: No
  Sender: FDA-Public Use
  Company Number: US-JNJFOC-20210510208

PATIENT
  Age: 9 Year
  Sex: Male

DRUGS (2)
  1. CHILDRENS ZYRTEC [Suspect]
     Active Substance: CETIRIZINE HYDROCHLORIDE
     Indication: MULTIPLE ALLERGIES
     Dosage: GIVEN ONCE WITH 5 ML AROUND 5 PM
     Route: 048
     Dates: start: 20210504
  2. CHILDRENS ZYRTEC [Suspect]
     Active Substance: CETIRIZINE HYDROCHLORIDE
     Dosage: PRODUCT LAST DRUG ADMIN: 05?MAY?2021?GIVEN WITH 10 ML OF THE PRODUCT AT AROUND 7 AM THIS MORNING
     Route: 048
     Dates: start: 20210505

REACTIONS (1)
  - Overdose [Unknown]

NARRATIVE: CASE EVENT DATE: 20210505
